FAERS Safety Report 15942254 (Version 1)
Quarter: 2019Q1

REPORT INFORMATION
  Report Type: Spontaneous
  Country: US (occurrence: US)
  Receive Date: 20190211
  Receipt Date: 20190211
  Transmission Date: 20190417
  Serious: Yes (Disabling)
  Sender: FDA-Public Use
  Company Number: None

PATIENT
  Age: 35 Year
  Sex: Male
  Weight: 85.5 kg

DRUGS (4)
  1. THERAFLU NIGHTTIME SEVERE COLD AND COUGH [Suspect]
     Active Substance: ACETAMINOPHEN\DIPHENHYDRAMINE HYDROCHLORIDE\PHENYLEPHRINE HYDROCHLORIDE
     Indication: PAIN
     Dosage: ?          QUANTITY:1 PACKET;?
     Route: 048
     Dates: start: 20181220, end: 20181220
  2. TURMERIC [Concomitant]
     Active Substance: HERBALS\TURMERIC
  3. VITAMIN B COMPLEX [Concomitant]
     Active Substance: CYANOCOBALAMIN\DEXPANTHENOL\NIACINAMIDE\PYRIDOXINE HYDROCHLORIDE\RIBOFLAVIN 5^-PHOSPHATE SODIUM\THIAMINE HYDROCHLORIDE\VITAMIN B COMPLEX
  4. THERAFLU NIGHTTIME SEVERE COLD AND COUGH [Suspect]
     Active Substance: ACETAMINOPHEN\DIPHENHYDRAMINE HYDROCHLORIDE\PHENYLEPHRINE HYDROCHLORIDE
     Indication: PYREXIA
     Dosage: ?          QUANTITY:1 PACKET;?
     Route: 048
     Dates: start: 20181220, end: 20181220

REACTIONS (5)
  - Head discomfort [None]
  - Anxiety [None]
  - Tension headache [None]
  - Feeling abnormal [None]
  - Panic attack [None]

NARRATIVE: CASE EVENT DATE: 20181220
